FAERS Safety Report 14018021 (Version 1)
Quarter: 2017Q3

REPORT INFORMATION
  Report Type: Spontaneous
  Country: CZ (occurrence: CZ)
  Receive Date: 20170928
  Receipt Date: 20170928
  Transmission Date: 20171128
  Serious: Yes (Congenital Anomaly, Other)
  Sender: FDA-Public Use
  Company Number: CZ-LUPIN PHARMACEUTICALS INC.-2017-05590

PATIENT
  Weight: 2.15 kg

DRUGS (2)
  1. ORFIRIL [Interacting]
     Active Substance: VALPROIC ACID
     Indication: PSYCHOGENIC SEIZURE
     Dosage: 800 MG, QD
     Route: 064
  2. LAMOTRIGINE. [Suspect]
     Active Substance: LAMOTRIGINE
     Indication: PETIT MAL EPILEPSY
     Dosage: 200 MG, QD
     Route: 064

REACTIONS (3)
  - Teratogenicity [Unknown]
  - Foetal exposure during pregnancy [Unknown]
  - Body height below normal [Unknown]
